FAERS Safety Report 17044759 (Version 2)
Quarter: 2019Q4

REPORT INFORMATION
  Report Type: Spontaneous
  Country: JP (occurrence: JP)
  Receive Date: 20191118
  Receipt Date: 20191122
  Transmission Date: 20200122
  Serious: Yes (Other)
  Sender: FDA-Public Use
  Company Number: JP-JNJFOC-20191114332

PATIENT
  Sex: Male

DRUGS (4)
  1. ZYTIGA [Suspect]
     Active Substance: ABIRATERONE ACETATE
     Indication: PROSTATE CANCER
     Route: 048
     Dates: start: 201802, end: 201905
  2. PREDNISOLONE. [Concomitant]
     Active Substance: PREDNISOLONE
     Indication: PROSTATE CANCER
     Route: 048
  3. DEGARELIX ACETATE [Concomitant]
     Active Substance: DEGARELIX ACETATE
     Route: 058
  4. DEGARELIX ACETATE [Concomitant]
     Active Substance: DEGARELIX ACETATE
     Indication: PROSTATE CANCER
     Route: 058

REACTIONS (12)
  - Pyelonephritis acute [Unknown]
  - Cholangitis infective [Unknown]
  - Disseminated intravascular coagulation [Unknown]
  - Pollakiuria [Recovered/Resolved]
  - Sepsis [Unknown]
  - Bile duct stone [Unknown]
  - Hypokalaemia [Unknown]
  - Hyperbilirubinaemia [Unknown]
  - Ureterolithiasis [Unknown]
  - Hypertension [Unknown]
  - Nephrolithiasis [Unknown]
  - Micturition urgency [Recovered/Resolved]
